FAERS Safety Report 4395986-8 (Version None)
Quarter: 2004Q3

REPORT INFORMATION
  Report Type: 
  Country: None (occurrence: None)
  Receive Date: 20040713
  Receipt Date: 20040706
  Transmission Date: 20050211
  Serious: Yes (Other)
  Sender: FDA-Public Use
  Company Number: US-BRISTOL-MYERS SQUIBB COMPANY-12631891

PATIENT
  Age: 56 Year
  Sex: Female

DRUGS (1)
  1. MEGESTROL ACETATE [Suspect]
     Indication: ENDOMETRIAL SARCOMA

REACTIONS (2)
  - MENINGIOMA [None]
  - TREATMENT RELATED SECONDARY MALIGNANCY [None]
